FAERS Safety Report 7833406-9 (Version None)
Quarter: 2011Q4

REPORT INFORMATION
  Report Type: 
  Country: None (occurrence: None)
  Receive Date: 20111024
  Receipt Date: 20111018
  Transmission Date: 20120403
  Serious: Yes (Death, Other)
  Sender: FDA-Public Use
  Company Number: BR-PFIZER INC-2011222533

PATIENT
  Age: 7 Year
  Sex: Female
  Weight: 16 kg

DRUGS (1)
  1. ZYVOX [Suspect]
     Indication: PNEUMONIA
     Dosage: UNK
     Route: 042
     Dates: start: 20110909

REACTIONS (2)
  - DEATH [None]
  - PHLEBITIS [None]
